FAERS Safety Report 8263550-6 (Version None)
Quarter: 2012Q1

REPORT INFORMATION
  Report Type: 
  Country: None (occurrence: None)
  Receive Date: 20120327
  Receipt Date: 20100603
  Transmission Date: 20120608
  Serious: Yes (Hospitalization)
  Sender: FDA-Public Use
  Company Number: PHHY2010US28892

PATIENT
  Age: 61 Year
  Sex: Female
  Weight: 183.9 kg

DRUGS (6)
  1. POTASSIUM CHLORIDE [Concomitant]
  2. CENTRUM SILVER (ACORBIC ACID, CALCIUM MINERALS NOS, RETINOL, TOCOPHERY [Concomitant]
  3. GLEEVEC [Suspect]
     Indication: CHRONIC MYELOID LEUKAEMIA
     Dosage: 400 MG, DAILY, ORAL
     Dates: start: 20040101
  4. IMODIUM (LOPERAMIDE HYDROCHLORIDE) TABLET [Concomitant]
  5. ASPIRIN [Concomitant]
  6. LASIX [Concomitant]

REACTIONS (3)
  - BLOOD URIC ACID INCREASED [None]
  - BLOOD CREATININE INCREASED [None]
  - RESPIRATORY TRACT INFECTION [None]
